FAERS Safety Report 15358248 (Version 1)
Quarter: 2018Q3

REPORT INFORMATION
  Report Type: Spontaneous
  Country: US (occurrence: US)
  Receive Date: 20180906
  Receipt Date: 20180906
  Transmission Date: 20181010
  Serious: No
  Sender: FDA-Public Use
  Company Number: US-PERRIGO-18US007162

PATIENT
  Age: 50 Year
  Sex: Female
  Weight: 47.62 kg

DRUGS (2)
  1. MULTIVITAMINS, PLAIN [Concomitant]
     Active Substance: VITAMINS
     Indication: SUPPLEMENTATION THERAPY
     Dosage: UNK
     Route: 065
  2. MINOXIDIL. [Suspect]
     Active Substance: MINOXIDIL
     Indication: ALOPECIA
     Dosage: UNKNOWN, UNKNOWN
     Route: 061
     Dates: start: 20180704, end: 20180705

REACTIONS (10)
  - Periorbital oedema [Recovering/Resolving]
  - Discomfort [Recovering/Resolving]
  - Product administered at inappropriate site [Recovered/Resolved]
  - Ear swelling [Recovering/Resolving]
  - Swelling [Unknown]
  - Urticaria [Recovering/Resolving]
  - Rash generalised [Recovering/Resolving]
  - Swelling face [Recovering/Resolving]
  - Pruritus generalised [Recovering/Resolving]
  - Skin exfoliation [Unknown]

NARRATIVE: CASE EVENT DATE: 20180706
